FAERS Safety Report 6413185-2 (Version None)
Quarter: 2009Q4

REPORT INFORMATION
  Report Type: 
  Country: None (occurrence: None)
  Receive Date: 20091026
  Receipt Date: 20091013
  Transmission Date: 20100525
  Serious: Yes (Other)
  Sender: FDA-Public Use
  Company Number: PHEH2009US09095

PATIENT
  Sex: Female

DRUGS (4)
  1. MIACALCIN [Suspect]
     Dosage: UNK
     Route: 045
     Dates: start: 20070101
  2. CALCITONIN-SALMON [Suspect]
     Dosage: UNK
     Route: 045
     Dates: start: 20090101, end: 20090601
  3. VESICARE [Concomitant]
     Indication: URINARY INCONTINENCE
  4. VIVELLE-DOT [Concomitant]
     Indication: HORMONE REPLACEMENT THERAPY

REACTIONS (2)
  - DEAFNESS UNILATERAL [None]
  - TINNITUS [None]
